FAERS Safety Report 12100697 (Version 1)
Quarter: 2016Q1

REPORT INFORMATION
  Report Type: Spontaneous
  Country: ES (occurrence: ES)
  Receive Date: 20160222
  Receipt Date: 20160222
  Transmission Date: 20160526
  Serious: Yes (Hospitalization, Other)
  Sender: FDA-Public Use
  Company Number: ES-GLAXOSMITHKLINE-ES2016021713

PATIENT
  Age: 1 Year
  Sex: Female
  Weight: 17 kg

DRUGS (5)
  1. NOIAFREN [Concomitant]
     Active Substance: CLOBAZAM
     Indication: EPILEPSY
     Dosage: 2.5 MG, BID
     Route: 048
     Dates: start: 20140516, end: 201506
  2. TROBALT [Suspect]
     Active Substance: EZOGABINE
     Indication: EPILEPSY
     Dosage: 90 MG, TID
     Route: 048
     Dates: start: 201503, end: 20150628
  3. TRILEPTAL [Concomitant]
     Active Substance: OXCARBAZEPINE
     Indication: EPILEPSY
     Dosage: 80 MG, TID
     Route: 048
     Dates: start: 20140516
  4. DEPAKINE [Concomitant]
     Active Substance: VALPROATE SODIUM
     Indication: EPILEPSY
     Dosage: 60 MG, TID
     Route: 048
     Dates: start: 20140516
  5. TROBALT [Concomitant]
     Active Substance: EZOGABINE
     Indication: EPILEPSY
     Dosage: 70 MG, TID
     Route: 048
     Dates: start: 20140516, end: 201502

REACTIONS (1)
  - Neurogenic bladder [Recovered/Resolved]

NARRATIVE: CASE EVENT DATE: 20150428
